FAERS Safety Report 5696556-1 (Version None)
Quarter: 2008Q2

REPORT INFORMATION
  Report Type: 
  Country: None (occurrence: None)
  Receive Date: 20080404
  Receipt Date: 20080404
  Transmission Date: 20081010
  Serious: Yes (Other)
  Sender: FDA-Public Use
  Company Number: None

PATIENT
  Age: 65 Year
  Sex: Female
  Weight: 81.1939 kg

DRUGS (1)
  1. NASAREL [Suspect]
     Indication: SEASONAL ALLERGY
     Dosage: 2 SPRAYS EACH NOSTRIL  2 X DAILY  NASAL
     Route: 045

REACTIONS (2)
  - CATARACT [None]
  - VISUAL ACUITY REDUCED [None]
